FAERS Safety Report 15427926 (Version 1)
Quarter: 2018Q3

REPORT INFORMATION
  Report Type: Report from Study
  Country: US (occurrence: US)
  Receive Date: 20180926
  Receipt Date: 20180926
  Transmission Date: 20181010
  Serious: Yes (Other)
  Sender: FDA-Public Use
  Company Number: PHEH2018US039044

PATIENT
  Sex: Male

DRUGS (1)
  1. AFINITOR [Suspect]
     Active Substance: EVEROLIMUS
     Indication: ANGIOMYOLIPOMA
     Dosage: 5 MG, QOD (EVERY OTHER DAY)
     Route: 048
     Dates: start: 20120106

REACTIONS (5)
  - Blood cholesterol increased [Not Recovered/Not Resolved]
  - Inappropriate schedule of drug administration [Unknown]
  - Ear infection [Unknown]
  - Decreased appetite [Not Recovered/Not Resolved]
  - Cough [Recovered/Resolved]
